FAERS Safety Report 7256550-6 (Version None)
Quarter: 2011Q1

REPORT INFORMATION
  Report Type: 
  Country: None (occurrence: None)
  Receive Date: 20110129
  Receipt Date: 20100630
  Transmission Date: 20110831
  Serious: No
  Sender: FDA-Public Use
  Company Number: US-ABBOTT-10P-163-0654736-00

PATIENT
  Age: 49 Year
  Sex: Female

DRUGS (8)
  1. TOPROL-XL [Concomitant]
     Indication: PRODUCT USED FOR UNKNOWN INDICATION
  2. PROTONIX [Concomitant]
     Indication: PRODUCT USED FOR UNKNOWN INDICATION
  3. NASACORT [Concomitant]
     Indication: PRODUCT USED FOR UNKNOWN INDICATION
  4. LO OVRAL BCP [Concomitant]
     Indication: PRODUCT USED FOR UNKNOWN INDICATION
  5. CALCIUM PLUS D [Concomitant]
     Indication: PRODUCT USED FOR UNKNOWN INDICATION
  6. WOMEN'S DAILY VITAMIN [Concomitant]
     Indication: PRODUCT USED FOR UNKNOWN INDICATION
  7. ALLEGRA [Concomitant]
     Indication: HYPERSENSITIVITY
  8. HUMIRA [Suspect]
     Indication: CROHN'S DISEASE
     Dates: start: 20100614, end: 20100614

REACTIONS (2)
  - RASH GENERALISED [None]
  - RASH PUSTULAR [None]
